FAERS Safety Report 10159188 (Version 1)
Quarter: 2014Q2

REPORT INFORMATION
  Report Type: Spontaneous
  Country: JP (occurrence: None)
  Receive Date: 20140506
  Receipt Date: 20140506
  Transmission Date: 20141212
  Serious: Yes (Death, Life-Threatening)
  Sender: FDA-Public Use
  Company Number: 2014HINLIT0400

PATIENT
  Age: 5 Decade
  Sex: Male
  Weight: 68.5 kg

DRUGS (8)
  1. LITHIUM [Suspect]
     Indication: DEPRESSION
  2. FLUVOXAMINE MALEATE [Suspect]
     Indication: DEPRESSION
     Dosage: 25 MG, BID.
  3. SODIUM VALPROATE [Concomitant]
  4. ZOPICLONE [Concomitant]
  5. DIAZEPAM [Concomitant]
  6. FLUNITRAZEPAM [Concomitant]
  7. ZOLPIDEM [Concomitant]
  8. BROTIZOLAM [Concomitant]

REACTIONS (13)
  - Serotonin syndrome [None]
  - Intentional overdose [None]
  - Drug interaction [None]
  - Completed suicide [None]
  - Cardio-respiratory arrest [None]
  - Haemorrhage subcutaneous [None]
  - Skin abrasion [None]
  - Pulmonary congestion [None]
  - Pulmonary oedema [None]
  - Brain oedema [None]
  - Circulatory collapse [None]
  - Cardiac disorder [None]
  - Haemorrhage [None]
